FAERS Safety Report 11723230 (Version 1)
Quarter: 2015Q4

REPORT INFORMATION
  Report Type: Spontaneous
  Country: US (occurrence: None)
  Receive Date: 20151110
  Receipt Date: 20151110
  Transmission Date: 20160304
  Serious: Yes (Other)
  Sender: FDA-Public Use
  Company Number: None

PATIENT
  Age: 74 Year
  Sex: Female
  Weight: 55.79 kg

DRUGS (8)
  1. CARISOPRODOL. [Concomitant]
     Active Substance: CARISOPRODOL
  2. CENTRUM WITH ZINC [Concomitant]
  3. FENTANYL TRANSDERMAL SYSTEM [Suspect]
     Active Substance: FENTANYL
     Indication: ARTHRALGIA
     Dosage: 100 MCG/HR  1 PATCH Q 3 DAYS SKIN
     Route: 062
     Dates: start: 2009
  4. ATENOLOL. [Concomitant]
     Active Substance: ATENOLOL
  5. DIAZEPAM. [Concomitant]
     Active Substance: DIAZEPAM
  6. FLUOXETINE HCL [Concomitant]
     Active Substance: FLUOXETINE HYDROCHLORIDE
  7. OMEPRAZOLE. [Concomitant]
     Active Substance: OMEPRAZOLE
  8. FISH OIL [Concomitant]
     Active Substance: FISH OIL

REACTIONS (7)
  - Wrong technique in product usage process [None]
  - Product physical consistency issue [None]
  - Pain [None]
  - Drug ineffective [None]
  - Crying [None]
  - Product adhesion issue [None]
  - Product substitution issue [None]

NARRATIVE: CASE EVENT DATE: 201508
